FAERS Safety Report 9293043 (Version 1)
Quarter: 2013Q2

REPORT INFORMATION
  Report Type: Spontaneous
  Country: US (occurrence: None)
  Receive Date: 20130515
  Receipt Date: 20130515
  Transmission Date: 20140414
  Serious: Yes (Other)
  Sender: FDA-Public Use
  Company Number: None

PATIENT
  Age: 29 Year
  Sex: Female
  Weight: 61.69 kg

DRUGS (2)
  1. VOLTAREN [Suspect]
     Indication: INTERVERTEBRAL DISC PROTRUSION
     Route: 061
     Dates: start: 20130424, end: 20130511
  2. VOLTAREN [Suspect]
     Indication: ARTHROPATHY
     Route: 061
     Dates: start: 20130424, end: 20130511

REACTIONS (5)
  - Depression [None]
  - Anxiety [None]
  - Mood swings [None]
  - Psychotic disorder [None]
  - Agitation [None]
